FAERS Safety Report 20842404 (Version 2)
Quarter: 2022Q2

REPORT INFORMATION
  Report Type: Report from Study
  Country: BE (occurrence: BE)
  Receive Date: 20220518
  Receipt Date: 20220523
  Transmission Date: 20220720
  Serious: Yes (Hospitalization)
  Sender: FDA-Public Use
  Company Number: BE-ABBVIE-22K-013-4398158-00

PATIENT
  Sex: Male

DRUGS (5)
  1. CARBIDOPA\LEVODOPA [Suspect]
     Active Substance: CARBIDOPA\LEVODOPA
     Indication: Parkinson^s disease
     Route: 050
     Dates: start: 20210716, end: 2021
  2. CARBIDOPA\LEVODOPA [Suspect]
     Active Substance: CARBIDOPA\LEVODOPA
     Dosage: MD 9.2 ML; CD 4.3 ML/HR DURING 16HOURS; ED 1.4 ML
     Route: 050
     Dates: start: 20210809, end: 20220127
  3. CARBIDOPA\LEVODOPA [Suspect]
     Active Substance: CARBIDOPA\LEVODOPA
     Dosage: MD 9.2 ML; CD 4.1 ML/HR DURING 16HOURS; ED 1.4 ML
     Route: 050
     Dates: start: 20220127, end: 2022
  4. CARBIDOPA\LEVODOPA [Suspect]
     Active Substance: CARBIDOPA\LEVODOPA
     Dosage: MD 9.2 ML; CD 4.1 ML/HR DURING 16HOURS; ED 1.4 ML
     Route: 050
     Dates: start: 2022
  5. BENSERAZIDE\LEVODOPA [Concomitant]
     Active Substance: BENSERAZIDE\LEVODOPA
     Indication: Parkinson^s disease
     Dosage: 125 MG, 2 TABLETS AT BEDTIME

REACTIONS (3)
  - COVID-19 [Not Recovered/Not Resolved]
  - Intestinal obstruction [Unknown]
  - Device dislocation [Unknown]
